FAERS Safety Report 11528967 (Version 1)
Quarter: 2015Q3

REPORT INFORMATION
  Report Type: Spontaneous
  Country: US (occurrence: None)
  Receive Date: 20150918
  Receipt Date: 20150918
  Transmission Date: 20151125
  Serious: No
  Sender: FDA-Public Use
  Company Number: None

PATIENT
  Age: 19 Year
  Sex: Female

DRUGS (8)
  1. SOD CHL [Concomitant]
  2. BETHKIS [Suspect]
     Active Substance: TOBRAMYCIN
     Indication: CYSTIC FIBROSIS
     Dosage: 300 MG BID NEB
     Dates: start: 20150903
  3. VITAMIN D [Concomitant]
     Active Substance: CHOLECALCIFEROL
  4. CAYSTON [Concomitant]
     Active Substance: AZTREONAM
  5. NEXIUM [Concomitant]
     Active Substance: ESOMEPRAZOLE MAGNESIUM
  6. ALBUTEROL. [Concomitant]
     Active Substance: ALBUTEROL
  7. PULMOZYME [Suspect]
     Active Substance: DORNASE ALFA
     Dosage: 2.5 MG QD NEB
     Dates: start: 20140926
  8. CREON [Concomitant]
     Active Substance: PANCRELIPASE AMYLASE\PANCRELIPASE LIPASE\PANCRELIPASE PROTEASE

REACTIONS (1)
  - Kidney infection [None]

NARRATIVE: CASE EVENT DATE: 20150818
